FAERS Safety Report 18106540 (Version 1)
Quarter: 2020Q3

REPORT INFORMATION
  Report Type: Spontaneous
  Country: SE (occurrence: SE)
  Receive Date: 20200804
  Receipt Date: 20200804
  Transmission Date: 20201103
  Serious: Yes (Other)
  Sender: FDA-Public Use
  Company Number: SE-TEVA-2020-SE-1808325

PATIENT
  Age: 60 Year
  Sex: Female
  Weight: 47 kg

DRUGS (3)
  1. TARGINIQ ER [Concomitant]
     Active Substance: NALOXONE HYDROCHLORIDE\OXYCODONE HYDROCHLORIDE
  2. DULOXETINE. [Concomitant]
     Active Substance: DULOXETINE
  3. PREGABALIN. [Suspect]
     Active Substance: PREGABALIN
     Indication: FIBROMYALGIA
     Dosage: INCREASING DOSE FOR 30 DAYS UP TO 275 MG / DAY
     Dates: start: 20200504, end: 20200620

REACTIONS (2)
  - Intentional overdose [Recovering/Resolving]
  - Suicide attempt [Recovering/Resolving]

NARRATIVE: CASE EVENT DATE: 20200614
